FAERS Safety Report 19027368 (Version 3)
Quarter: 2021Q2

REPORT INFORMATION
  Report Type: Spontaneous
  Country: JP (occurrence: JP)
  Receive Date: 20210318
  Receipt Date: 20210616
  Transmission Date: 20210717
  Serious: Yes (Other)
  Sender: FDA-Public Use
  Company Number: NVSJ2021JP004161

PATIENT

DRUGS (1)
  1. REVOLADE TAB [Suspect]
     Active Substance: ELTROMBOPAG OLAMINE
     Indication: APLASTIC ANAEMIA
     Dosage: UNK
     Route: 048

REACTIONS (4)
  - Concomitant disease progression [Not Recovered/Not Resolved]
  - Myeloblast count increased [Not Recovered/Not Resolved]
  - Cytogenetic abnormality [Not Recovered/Not Resolved]
  - Therapy non-responder [Not Recovered/Not Resolved]
